FAERS Safety Report 5893407-7 (Version None)
Quarter: 2008Q3

REPORT INFORMATION
  Report Type: 
  Country: None (occurrence: None)
  Receive Date: 20080922
  Receipt Date: 20080922
  Transmission Date: 20090109
  Serious: Yes (Life-Threatening, Other)
  Sender: FDA-Public Use
  Company Number: None

PATIENT
  Age: 29 Year
  Sex: Male
  Weight: 72.5755 kg

DRUGS (1)
  1. DULOXETINE 60MG LILLY [Suspect]
     Indication: DEPRESSION
     Dosage: 60MG DAILY PO, 16 - 18 MONTHS
     Route: 048

REACTIONS (14)
  - DRUG PRESCRIBING ERROR [None]
  - DRY MOUTH [None]
  - FEELING JITTERY [None]
  - HALLUCINATION [None]
  - HEADACHE [None]
  - HYPOPHAGIA [None]
  - IMMOBILE [None]
  - IMPAIRED WORK ABILITY [None]
  - MALAISE [None]
  - NAUSEA [None]
  - PANIC ATTACK [None]
  - PARAESTHESIA [None]
  - PARANOIA [None]
  - WITHDRAWAL SYNDROME [None]
